FAERS Safety Report 5081146-4 (Version None)
Quarter: 2006Q3

REPORT INFORMATION
  Report Type: 
  Country: None (occurrence: None)
  Receive Date: 20060810
  Receipt Date: 20060727
  Transmission Date: 20061208
  Serious: Yes (Life-Threatening, Hospitalization)
  Sender: FDA-Public Use
  Company Number: US-2006-015330

PATIENT
  Age: 45 Year
  Sex: Female
  Weight: 72 kg

DRUGS (5)
  1. CAMPATH [Suspect]
     Indication: LIVER TRANSPLANT
     Dosage: 30 MG, 1 DOSE ON DAY 0, INTRAVENOUS
     Route: 042
     Dates: start: 20060511, end: 20060511
  2. TACROLIMUS(TACROLIMUS) [Suspect]
     Indication: IMMUNOSUPPRESSANT DRUG THERAPY
     Dosage: 2 MG, EVERY 12H, INTRAVENOUS
     Route: 042
     Dates: start: 20060514, end: 20060521
  3. METHYLPREDNISOLONE [Concomitant]
  4. ACETAMINOPHEN [Concomitant]
  5. BENADRYL ^ACHE^ (AMMONIUM CHLORIDE, DIPHENHYDRAMINE HYDROCHLORIDE, MEN [Concomitant]

REACTIONS (13)
  - ANASTOMOTIC HAEMORRHAGE [None]
  - COMPLICATIONS OF TRANSPLANTED LIVER [None]
  - HAEMODIALYSIS [None]
  - HEPATIC ENCEPHALOPATHY [None]
  - HEPATIC FAILURE [None]
  - HEPATIC NECROSIS [None]
  - HYPOTENSION [None]
  - HYPOXIA [None]
  - LEFT VENTRICLE OUTFLOW TRACT OBSTRUCTION [None]
  - PLATELET COUNT DECREASED [None]
  - RENAL FAILURE [None]
  - TACHYCARDIA [None]
  - TRANSPLANT FAILURE [None]
